FAERS Safety Report 12551424 (Version 1)
Quarter: 2016Q3

REPORT INFORMATION
  Report Type: Spontaneous
  Country: US (occurrence: US)
  Receive Date: 20160713
  Receipt Date: 20160713
  Transmission Date: 20161109
  Serious: No
  Sender: FDA-Public Use
  Company Number: US-TEVA-659368USA

PATIENT
  Sex: Female

DRUGS (1)
  1. ZECUITY [Suspect]
     Active Substance: SUMATRIPTAN SUCCINATE
     Indication: MIGRAINE

REACTIONS (5)
  - Application site erythema [Recovered/Resolved]
  - Application site pruritus [Unknown]
  - Application site swelling [Unknown]
  - Application site pain [Recovered/Resolved]
  - Drug ineffective [Unknown]
